FAERS Safety Report 16330262 (Version 7)
Quarter: 2019Q3

REPORT INFORMATION
  Report Type: Report from Study
  Country: None (occurrence: JP)
  Receive Date: 20190520
  Receipt Date: 20190909
  Transmission Date: 20191004
  Serious: Yes (Death, Life-Threatening)
  Sender: FDA-Public Use
  Company Number: JP-ABBVIE-19S-087-2789492-00

PATIENT
  Age: 76 Year
  Sex: Male
  Weight: 48 kg

DRUGS (7)
  1. BENFOTIAMINE-PYRIDOXINE HYDROCHLORIDE-CYANCOBALAMIN MIXT [Concomitant]
     Indication: PRODUCT USED FOR UNKNOWN INDICATION
     Route: 048
     Dates: start: 20180210, end: 20190519
  2. DUODOPA [Suspect]
     Active Substance: CARBIDOPA\LEVODOPA
     Indication: PARKINSON^S DISEASE
     Dosage: MD: 8 ML?CD: 1.8 ML/HR X 15HR?ED: 1.5 ML/UNIT X 2
     Route: 050
     Dates: start: 20180126, end: 20180130
  3. ROTIGOTINE [Concomitant]
     Active Substance: ROTIGOTINE
     Indication: PARKINSON^S DISEASE
     Route: 062
  4. MAGNESIUM OXIDE. [Concomitant]
     Active Substance: MAGNESIUM OXIDE
     Indication: PRODUCT USED FOR UNKNOWN INDICATION
     Route: 048
     Dates: end: 20190519
  5. LEVODOPA [Concomitant]
     Active Substance: LEVODOPA
     Indication: PARKINSON^S DISEASE
     Route: 042
     Dates: start: 20180201, end: 20180201
  6. DUODOPA [Suspect]
     Active Substance: CARBIDOPA\LEVODOPA
     Dosage: MD: 11 ML?CD: 1.8 ML/HR X 15HR?ED: 1.5 ML/UNIT X 5
     Route: 050
     Dates: start: 20180202, end: 20190519
  7. MECOBALAMIN [Concomitant]
     Active Substance: METHYLCOBALAMIN
     Indication: PRODUCT USED FOR UNKNOWN INDICATION
     Route: 048
     Dates: end: 20180209

REACTIONS (5)
  - Zinc deficiency [Recovered/Resolved]
  - Product storage error [Unknown]
  - Loss of consciousness [Unknown]
  - Product administration error [Unknown]
  - Asphyxia [Fatal]

NARRATIVE: CASE EVENT DATE: 20180222
